FAERS Safety Report 4394389-X (Version None)
Quarter: 2004Q3

REPORT INFORMATION
  Report Type: 
  Country: None (occurrence: None)
  Receive Date: 20040706
  Receipt Date: 20040621
  Transmission Date: 20050211
  Serious: Yes (Hospitalization)
  Sender: FDA-Public Use
  Company Number: S04-USA-03701-01

PATIENT
  Age: 14 Year
  Sex: Female

DRUGS (1)
  1. LEXAPRO [Suspect]
     Indication: DEPRESSION
     Dosage: 5 MG QD PO
     Route: 048
     Dates: start: 20040520, end: 20040603

REACTIONS (7)
  - APHASIA [None]
  - CONVERSION DISORDER [None]
  - CONVULSION [None]
  - GAIT DISTURBANCE [None]
  - HEADACHE [None]
  - PARALYSIS [None]
  - TENDONITIS [None]
